FAERS Safety Report 8774727 (Version 1)
Quarter: 2012Q4

REPORT INFORMATION
  Report Type: 
  Country: US (occurrence: US)
  Receive Date: 20120910
  Receipt Date: 20120910
  Transmission Date: 20130627
  Serious: Yes (Hospitalization, Other)
  Sender: FDA-Public Use
  Company Number: US-SANOFI-AVENTIS-2012SA063182

PATIENT
  Age: 70 Year
  Sex: Female

DRUGS (3)
  1. LANTUS [Suspect]
     Indication: TYPE II DIABETES MELLITUS
     Dosage: in the evening Dose:18 unit(s)
     Route: 058
     Dates: start: 2010
  2. LANTUS [Suspect]
     Indication: TYPE II DIABETES MELLITUS
     Dosage: lantus vial
     Route: 058
  3. SOLOSTAR [Suspect]
     Indication: TYPE II DIABETES MELLITUS
     Dates: start: 2010

REACTIONS (3)
  - Renal transplant [Unknown]
  - Visual impairment [Unknown]
  - Device difficult to use [None]
